FAERS Safety Report 6067677-9 (Version None)
Quarter: 2009Q1

REPORT INFORMATION
  Report Type: 
  Country: None (occurrence: None)
  Receive Date: 20090205
  Receipt Date: 20090129
  Transmission Date: 20090719
  Serious: Yes (Hospitalization)
  Sender: FDA-Public Use
  Company Number: FR-PFIZER INC-2009156463

PATIENT

DRUGS (12)
  1. LYRICA [Suspect]
     Dosage: 100 MG, 2X/DAY
     Route: 048
     Dates: start: 20080901, end: 20081022
  2. LYRICA [Suspect]
     Dosage: 100 MG, 2X/DAY
     Route: 048
     Dates: start: 20080901, end: 20081022
  3. TAZOCILLINE [Suspect]
     Dosage: 4 G, 1X/DAY
     Route: 042
     Dates: start: 20080925, end: 20081021
  4. TRAMADOL HYDROCHLORIDE AND ACETAMINOPHEN [Suspect]
     Route: 048
     Dates: start: 20080901, end: 20081022
  5. ARIXTRA [Suspect]
     Dosage: UNK
     Route: 058
     Dates: start: 20081001, end: 20081022
  6. FORLAX [Concomitant]
     Dosage: UNK
     Route: 048
     Dates: start: 20080901, end: 20081022
  7. FUMAFER [Concomitant]
     Dosage: UNK
     Route: 048
     Dates: start: 20080901, end: 20081022
  8. ACTISKENAN [Concomitant]
     Dosage: UNK
  9. IMOVANE [Concomitant]
     Dosage: UNK
  10. LAROXYL [Concomitant]
     Dosage: UNK
  11. LEXOMIL [Concomitant]
     Dosage: UNK
  12. ALL OTHER THERAPEUTIC PRODUCTS [Concomitant]

REACTIONS (2)
  - LEUKOPENIA [None]
  - NEUTROPENIA [None]
